FAERS Safety Report 9396820 (Version 1)
Quarter: 2013Q3

REPORT INFORMATION
  Report Type: Spontaneous
  Country: US (occurrence: None)
  Receive Date: 20130710
  Receipt Date: 20130710
  Transmission Date: 20140515
  Serious: Yes (Life-Threatening, Hospitalization)
  Sender: FDA-Public Use
  Company Number: None

PATIENT
  Age: 57 Year
  Sex: Male
  Weight: 89.1 kg

DRUGS (1)
  1. WARFARIN [Suspect]
     Route: 048
     Dates: start: 20120503, end: 20130307

REACTIONS (8)
  - Haematocrit decreased [None]
  - Faeces discoloured [None]
  - Abdominal distension [None]
  - Local swelling [None]
  - Proteinuria [None]
  - International normalised ratio increased [None]
  - Occult blood positive [None]
  - Haemorrhage [None]
